FAERS Safety Report 7164558-4 (Version None)
Quarter: 2010Q4

REPORT INFORMATION
  Report Type: 
  Country: None (occurrence: None)
  Receive Date: 20101215
  Receipt Date: 20101203
  Transmission Date: 20110411
  Serious: Yes (Hospitalization)
  Sender: FDA-Public Use
  Company Number: US-SANOFI-AVENTIS-2010SA073771

PATIENT
  Age: 76 Year
  Sex: Female

DRUGS (13)
  1. PLAVIX [Suspect]
     Route: 065
     Dates: start: 20100624
  2. TOPROL-XL [Suspect]
  3. TRACLEER [Suspect]
     Indication: PULMONARY ARTERIAL HYPERTENSION
     Route: 048
     Dates: start: 20100913, end: 20100920
  4. TRACLEER [Suspect]
     Route: 048
     Dates: start: 20100820, end: 20100912
  5. TRACLEER [Suspect]
     Route: 048
     Dates: start: 20100921
  6. WARFARIN SODIUM [Concomitant]
  7. LASIX [Concomitant]
  8. FERROUS SULFATE [Concomitant]
  9. KLOR-CON [Concomitant]
  10. VALIUM [Concomitant]
  11. COLACE [Concomitant]
  12. HYDROXYZINE [Concomitant]
  13. ALBUTEROL [Concomitant]

REACTIONS (4)
  - DIZZINESS [None]
  - HAEMOGLOBIN DECREASED [None]
  - HYPOTENSION [None]
  - PRURITUS [None]
